FAERS Safety Report 8477201 (Version 6)
Quarter: 2013Q3

REPORT INFORMATION
  Report Type: Spontaneous
  Country: CA (occurrence: CA)
  Receive Date: 20120326
  Receipt Date: 20130723
  Transmission Date: 20140515
  Serious: Yes (Death, Life-Threatening)
  Sender: FDA-Public Use
  Company Number: CA-ASTRAZENECA-2012SE19307

PATIENT
  Age: 43 Year
  Sex: Female
  Weight: 70 kg

DRUGS (10)
  1. DIPRIVAN [Suspect]
     Dosage: 0.1MG/ML
     Route: 042
     Dates: start: 20120318
  2. DIPRIVAN [Suspect]
     Dosage: APPROXIMATELY 900MG (100 ML VIAL) OF PROPOFOL OVER 8  MINUTES OF CONTIUOUS ITRAVENOUS INFUSION
     Route: 042
     Dates: start: 20120318
  3. ATROPINE [Concomitant]
  4. DOPAMINE HCL [Concomitant]
  5. EPINEPHRINE [Concomitant]
  6. ETOMIDATE [Concomitant]
  7. MAGNESIUM SULFATE [Concomitant]
  8. NOREPINEPHRINE [Concomitant]
  9. SODIUM BICARBONATE INJECTABLE [Concomitant]
     Route: 042
  10. SUCCINYLCHOLINE CHLORIDE [Concomitant]
     Route: 042

REACTIONS (3)
  - Accidental overdose [Fatal]
  - Shock [Fatal]
  - Hypotension [Fatal]
